FAERS Safety Report 6469185-X (Version None)
Quarter: 2009Q4

REPORT INFORMATION
  Report Type: 
  Country: None (occurrence: None)
  Receive Date: 20091203
  Receipt Date: 20070926
  Transmission Date: 20100525
  Serious: Yes (Life-Threatening, Hospitalization, Other)
  Sender: FDA-Public Use
  Company Number: JP-ELI_LILLY_AND_COMPANY-JP200709000010

PATIENT
  Sex: Male
  Weight: 38 kg

DRUGS (16)
  1. PEMETREXED [Suspect]
     Indication: PLEURAL MESOTHELIOMA MALIGNANT
     Dosage: 640 MG, OTHER
     Route: 042
     Dates: start: 20070416, end: 20070416
  2. PEMETREXED [Suspect]
     Dosage: 320 MG, OTHER
     Route: 042
     Dates: start: 20070530, end: 20070530
  3. CISPLATIN [Suspect]
     Indication: PLEURAL MESOTHELIOMA MALIGNANT
     Dosage: 100 MG, OTHER
     Route: 042
     Dates: start: 20070416, end: 20070416
  4. CISPLATIN [Suspect]
     Dosage: 50 MG, OTHER
     Route: 042
     Dates: start: 20070530, end: 20070530
  5. PANVITAN [Concomitant]
     Dosage: 0.5 MG, DAILY (1/D)
     Route: 048
     Dates: start: 20070407, end: 20070710
  6. CYANOCOBALAMIN [Concomitant]
     Dosage: 1 MG, DAILY (1/D)
     Route: 030
     Dates: start: 20070409, end: 20070409
  7. CYANOCOBALAMIN [Concomitant]
     Dosage: 1 MG, DAILY (1/D)
     Route: 030
     Dates: start: 20070604, end: 20070604
  8. LOXONIN [Concomitant]
     Indication: CANCER PAIN
     Dosage: 180 MG, DAILY (1/D)
     Route: 048
     Dates: start: 20070402, end: 20070618
  9. OXYCONTIN [Concomitant]
     Indication: CANCER PAIN
     Dosage: 20 MG, DAILY (1/D)
     Route: 048
     Dates: start: 20070402, end: 20070417
  10. OXYCONTIN [Concomitant]
     Dosage: 30 MG, DAILY (1/D)
     Route: 048
     Dates: start: 20070418, end: 20070521
  11. OXYCONTIN [Concomitant]
     Dosage: 40 MG, DAILY (1/D)
     Route: 048
     Dates: start: 20070522, end: 20070630
  12. PRIMPERAN /00041901/ [Concomitant]
     Indication: PROPHYLAXIS
     Dosage: 15 MG, DAILY (1/D)
     Route: 048
     Dates: start: 20070402, end: 20070618
  13. MAGLAX /JPN/ [Concomitant]
     Dosage: 750 MG, DAILY (1/D)
     Route: 065
     Dates: start: 20070402, end: 20070618
  14. PURSENNID [Concomitant]
     Dosage: 24 MG, DAILY (1/D)
     Route: 048
     Dates: start: 20070402, end: 20070630
  15. ALLOID G [Concomitant]
     Indication: PROPHYLAXIS
     Dosage: 60 ML, DAILY (1/D)
     Route: 048
     Dates: start: 20070502, end: 20070610
  16. TAKEPRON [Concomitant]
     Indication: PROPHYLAXIS
     Dosage: 15 MG, DAILY (1/D)
     Route: 048
     Dates: start: 20070427, end: 20070618

REACTIONS (5)
  - ANAEMIA [None]
  - BLOOD UREA INCREASED [None]
  - NEUTROPHIL COUNT DECREASED [None]
  - PLATELET COUNT DECREASED [None]
  - WHITE BLOOD CELL COUNT DECREASED [None]
